FAERS Safety Report 25023420 (Version 1)
Quarter: 2025Q1

REPORT INFORMATION
  Report Type: Report from Study
  Country: US (occurrence: US)
  Receive Date: 20250228
  Receipt Date: 20250228
  Transmission Date: 20250409
  Serious: Yes (Other)
  Sender: TAKEDA
  Company Number: US-TAKEDA-2024TUS105526

PATIENT
  Sex: Male

DRUGS (15)
  1. FRUQUINTINIB [Suspect]
     Active Substance: FRUQUINTINIB
     Indication: Colon cancer
  2. FRUQUINTINIB [Suspect]
     Active Substance: FRUQUINTINIB
  3. FRUQUINTINIB [Suspect]
     Active Substance: FRUQUINTINIB
  4. FRUQUINTINIB [Suspect]
     Active Substance: FRUQUINTINIB
  5. AMLODIPINE [Concomitant]
     Active Substance: AMLODIPINE BESYLATE
  6. LASIX [Concomitant]
     Active Substance: FUROSEMIDE
  7. PRADAXA [Concomitant]
     Active Substance: DABIGATRAN ETEXILATE MESYLATE
  8. PROCHLORPERAZINE [Concomitant]
     Active Substance: PROCHLORPERAZINE
  9. SPIRONOLACTONE [Concomitant]
     Active Substance: SPIRONOLACTONE
  10. FISH OIL [Concomitant]
     Active Substance: FISH OIL
  11. COENZYME Q10 [Concomitant]
     Active Substance: DIETARY SUPPLEMENT\UBIDECARENONE
  12. VITAMIN B COMPLEX [Concomitant]
     Active Substance: CYANOCOBALAMIN\DEXPANTHENOL\NIACINAMIDE\PYRIDOXINE HYDROCHLORIDE\RIBOFLAVIN 5^-PHOSPHATE SODIUM\THIA
  13. FUROSEMIDE [Concomitant]
     Active Substance: FUROSEMIDE
  14. LISINOPRIL [Concomitant]
     Active Substance: LISINOPRIL
  15. FERROUS SULFATE [Concomitant]
     Active Substance: FERROUS SULFATE

REACTIONS (5)
  - Colon cancer [Not Recovered/Not Resolved]
  - Lethargy [Not Recovered/Not Resolved]
  - Blood pressure increased [Recovering/Resolving]
  - Dysphonia [Recovering/Resolving]
  - Fatigue [Recovering/Resolving]
